FAERS Safety Report 23742048 (Version 3)
Quarter: 2024Q3

REPORT INFORMATION
  Report Type: Spontaneous
  Country: PT (occurrence: PT)
  Receive Date: 20240415
  Receipt Date: 20240701
  Transmission Date: 20241017
  Serious: Yes (Other)
  Sender: ACCORD
  Company Number: None

PATIENT
  Age: 64 Year
  Sex: Female
  Weight: 64 kg

DRUGS (7)
  1. CAPECITABINE [Suspect]
     Active Substance: CAPECITABINE
     Indication: Colorectal cancer
     Dosage: 1500MG ADMINISTERED 2X/DAY FOR 14 DAYS, FOLLOWED BY A REST PERIOD OF 7 DAYS, STRENGTH: 500 MG
     Dates: start: 20240223, end: 20240223
  2. CAPECITABINE [Suspect]
     Active Substance: CAPECITABINE
     Indication: Colorectal cancer
     Dosage: 150MG ADMINISTERED 2X/DAY FOR 14 DAYS, FOLLOWED BY A REST PERIOD OF 7 DAYS
     Dates: start: 20240223, end: 20240223
  3. BISOPROLOL [Concomitant]
     Active Substance: BISOPROLOL\BISOPROLOL FUMARATE
     Dosage: STRENGTH: 5 MG
  4. DOMPERIDONE [Concomitant]
     Active Substance: DOMPERIDONE
     Dosage: STRENGTH: 10 MG
  5. OMEPRAZOLE [Concomitant]
     Active Substance: OMEPRAZOLE
     Dosage: STRENGTH: 20 MG
  6. CLONAZEPAM [Concomitant]
     Active Substance: CLONAZEPAM
     Dosage: STRENGTH: 0.5 MG
  7. PANCREATIN [Concomitant]
     Active Substance: PANCRELIPASE
     Dosage: STRENGTH: 300 MG

REACTIONS (1)
  - Bronchospasm [Recovered/Resolved]

NARRATIVE: CASE EVENT DATE: 20240223
